FAERS Safety Report 25121977 (Version 6)
Quarter: 2025Q4

REPORT INFORMATION
  Report Type: Report from Study
  Country: US (occurrence: US)
  Receive Date: 20250326
  Receipt Date: 20251017
  Transmission Date: 20260117
  Serious: Yes (Hospitalization)
  Sender: TAKEDA
  Company Number: US-TAKEDA-2025TUS006920

PATIENT
  Age: 74 Year
  Sex: Male

DRUGS (1)
  1. MARIBAVIR [Suspect]
     Active Substance: MARIBAVIR
     Indication: Cytomegalovirus infection
     Dosage: 400 MILLIGRAM, BID
     Dates: start: 20240115, end: 20250927

REACTIONS (8)
  - Bronchitis [Unknown]
  - Dyspnoea [Unknown]
  - Hypersomnia [Unknown]
  - Fluid retention [Unknown]
  - Peripheral swelling [Unknown]
  - Product use issue [Unknown]
  - Hearing aid user [Unknown]
  - Hypoacusis [Unknown]
